FAERS Safety Report 19523111 (Version 2)
Quarter: 2025Q3

REPORT INFORMATION
  Report Type: Spontaneous
  Country: CA (occurrence: CA)
  Receive Date: 20210712
  Receipt Date: 20250731
  Transmission Date: 20251020
  Serious: Yes (Disabling, Other)
  Sender: SANOFI AVENTIS
  Company Number: CA-SA-SAC20210705000447

PATIENT
  Age: 73 Year
  Sex: Female
  Weight: 68 kg

DRUGS (3)
  1. TAXOTERE [Suspect]
     Active Substance: DOCETAXEL
     Indication: Breast cancer metastatic
     Dosage: 75 MG/M2, Q3W
     Route: 042
     Dates: start: 20200219, end: 20200630
  2. HERCEPTIN [Concomitant]
     Active Substance: TRASTUZUMAB
     Route: 058
  3. PERJETA [Concomitant]
     Active Substance: PERTUZUMAB
     Route: 042

REACTIONS (2)
  - Hypoacusis [Unknown]
  - Deafness [Unknown]

NARRATIVE: CASE EVENT DATE: 20200310
